FAERS Safety Report 24246189 (Version 2)
Quarter: 2024Q3

REPORT INFORMATION
  Report Type: Spontaneous
  Country: IN (occurrence: IN)
  Receive Date: 20240824
  Receipt Date: 20240905
  Transmission Date: 20241017
  Serious: Yes (Death, Life-Threatening, Other)
  Sender: ALKEM
  Company Number: None

PATIENT
  Age: 33 Year
  Sex: Male

DRUGS (9)
  1. MYCOPHENOLATE MOFETIL [Suspect]
     Active Substance: MYCOPHENOLATE MOFETIL
     Indication: Immunosuppressant drug therapy
     Dosage: UNK
     Route: 065
  2. TACROLIMUS [Suspect]
     Active Substance: TACROLIMUS
     Indication: Immunosuppressant drug therapy
     Dosage: UNK
     Route: 065
  3. METHYLPREDNISOLONE [Suspect]
     Active Substance: METHYLPREDNISOLONE
     Indication: Immunosuppressant drug therapy
     Dosage: 1000 MILLIGRAM
     Route: 065
  4. BASILIXIMAB [Suspect]
     Active Substance: BASILIXIMAB
     Indication: Immunosuppressant drug therapy
     Dosage: 20 MILLIGRAM (IN 50 ML)
     Route: 065
  5. PREDNISOLONE [Suspect]
     Active Substance: PREDNISOLONE
     Indication: Immunosuppressant drug therapy
     Dosage: UNK
     Route: 065
  6. MEROPENEM [Concomitant]
     Active Substance: MEROPENEM
     Indication: Prophylaxis
     Dosage: UNK
     Route: 065
  7. SODIUM CHLORIDE [Concomitant]
     Active Substance: SODIUM CHLORIDE
     Indication: Immunosuppressant drug therapy
     Dosage: 50 MILLILITER
     Route: 065
  8. Septran [Concomitant]
     Indication: Prophylaxis
     Dosage: UNK (TABLET)
     Route: 065
  9. TARGOCID [Concomitant]
     Active Substance: TEICOPLANIN
     Indication: Prophylaxis
     Dosage: UNK
     Route: 065

REACTIONS (12)
  - Aortic aneurysm rupture [Fatal]
  - Congestive hepatopathy [Fatal]
  - Pericardial effusion [Fatal]
  - Circulatory collapse [Fatal]
  - Pulmonary artery thrombosis [Fatal]
  - Cardiomegaly [Fatal]
  - Spleen congestion [Fatal]
  - Infective aneurysm [Fatal]
  - Respiratory tract infection fungal [Fatal]
  - Aspergillus infection [Fatal]
  - Bacterial infection [Fatal]
  - Transplant rejection [Unknown]
